FAERS Safety Report 4544548-8 (Version None)
Quarter: 2004Q4

REPORT INFORMATION
  Report Type: 
  Country: None (occurrence: None)
  Receive Date: 20041230
  Receipt Date: 20041217
  Transmission Date: 20050328
  Serious: Yes (Other)
  Sender: FDA-Public Use
  Company Number: 2004114605

PATIENT
  Sex: Female

DRUGS (1)
  1. CELECOXIB              (CELECOXIB) [Suspect]
     Indication: SPONDYLOSIS
     Dosage: 200 MG
     Route: 048

REACTIONS (4)
  - CARDIAC OPERATION [None]
  - CORONARY ARTERIAL STENT INSERTION [None]
  - DYSPEPSIA [None]
  - PALPITATIONS [None]
